FAERS Safety Report 10051504 (Version 1)
Quarter: 2014Q2

REPORT INFORMATION
  Report Type: Spontaneous
  Country: US (occurrence: US)
  Receive Date: 20140401
  Receipt Date: 20140401
  Transmission Date: 20141212
  Serious: No
  Sender: FDA-Public Use
  Company Number: US-GILEAD-2014-0098030

PATIENT
  Age: 68 Year
  Sex: Female

DRUGS (3)
  1. SOVALDI [Suspect]
     Indication: PRODUCT USED FOR UNKNOWN INDICATION
     Dosage: 400 MG, QD
     Route: 065
     Dates: start: 201402
  2. RIBAVIRIN [Suspect]
     Indication: PRODUCT USED FOR UNKNOWN INDICATION
     Dosage: 500 MG, BID
     Route: 065
     Dates: start: 201402, end: 201403
  3. RIBAVIRIN [Suspect]
     Dosage: 300 MG, BID
     Route: 065
     Dates: start: 201403

REACTIONS (1)
  - Haemoglobin decreased [Unknown]
